FAERS Safety Report 5717965-8 (Version None)
Quarter: 2008Q2

REPORT INFORMATION
  Report Type: 
  Country: None (occurrence: None)
  Receive Date: 20080425
  Receipt Date: 20080418
  Transmission Date: 20081010
  Serious: Yes (Hospitalization)
  Sender: FDA-Public Use
  Company Number: A0723647A

PATIENT
  Age: 17 Year
  Sex: Male

DRUGS (2)
  1. WELLBUTRIN [Suspect]
     Indication: AGITATION
     Route: 048
     Dates: start: 20080326
  2. NO CONCURRENT MEDICATION [Concomitant]

REACTIONS (7)
  - BURNING SENSATION [None]
  - DYSPHAGIA [None]
  - EYE SWELLING [None]
  - JOINT RANGE OF MOTION DECREASED [None]
  - JOINT STIFFNESS [None]
  - JOINT SWELLING [None]
  - URTICARIA [None]
